FAERS Safety Report 4944480-1 (Version None)
Quarter: 2006Q1

REPORT INFORMATION
  Report Type: 
  Country: None (occurrence: None)
  Receive Date: 20060104
  Receipt Date: 20050826
  Transmission Date: 20060701
  Serious: Yes (Other)
  Sender: FDA-Public Use
  Company Number: A03200502711

PATIENT

DRUGS (2)
  1. ELOXATIN [Suspect]
     Dosage: INTRAVENOUS NOS
     Route: 042
     Dates: start: 20050501, end: 20050501
  2. 5-FU - SOLUTION [Suspect]
     Dosage: INTRAVENOUS NOS
     Route: 042

REACTIONS (4)
  - ALVEOLITIS ALLERGIC [None]
  - CHEST PAIN [None]
  - DYSPNOEA [None]
  - HAEMOPTYSIS [None]
